FAERS Safety Report 12349427 (Version 4)
Quarter: 2019Q4

REPORT INFORMATION
  Report Type: Report from Study
  Country: BR (occurrence: BR)
  Receive Date: 20160510
  Receipt Date: 20191022
  Transmission Date: 20200122
  Serious: Yes (Other)
  Sender: FDA-Public Use
  Company Number: BR-ROCHE-1421444

PATIENT
  Sex: Female
  Weight: 68 kg

DRUGS (9)
  1. RITUXIMAB. [Suspect]
     Active Substance: RITUXIMAB
     Indication: RHEUMATOID ARTHRITIS
     Route: 065
  2. NIMESULIDE [Concomitant]
     Active Substance: NIMESULIDE
     Indication: RHEUMATOID ARTHRITIS
     Route: 065
  3. ACTEMRA [Suspect]
     Active Substance: TOCILIZUMAB
     Indication: RHEUMATOID ARTHRITIS
     Dosage: MOST RECENT INFUSION: 16/SEP/2019
     Route: 042
     Dates: start: 20131023, end: 20140328
  4. PANTOPRAZOLE [Concomitant]
     Active Substance: PANTOPRAZOLE
     Dosage: ONE TABLET IN FASTING
     Route: 065
  5. INFLIXIMAB [Suspect]
     Active Substance: INFLIXIMAB
     Indication: RHEUMATOID ARTHRITIS
     Route: 065
  6. PRELONE [Suspect]
     Active Substance: PREDNISOLONE
     Indication: RHEUMATOID ARTHRITIS
     Route: 065
  7. PRELONE [Suspect]
     Active Substance: PREDNISOLONE
     Route: 065
  8. PRELONE [Suspect]
     Active Substance: PREDNISOLONE
     Route: 065
  9. CERAZETTE [DESOGESTREL] [Concomitant]
     Active Substance: DESOGESTREL
     Indication: CONTRACEPTION

REACTIONS (11)
  - Arthropathy [Unknown]
  - Skin laceration [Not Recovered/Not Resolved]
  - Maternal exposure during pregnancy [Unknown]
  - Lactose intolerance [Unknown]
  - Mass [Recovered/Resolved]
  - Breast disorder [Unknown]
  - Urinary tract infection [Unknown]
  - Gluten sensitivity [Unknown]
  - Spinal column injury [Unknown]
  - Bone erosion [Unknown]
  - Impaired healing [Not Recovered/Not Resolved]
